FAERS Safety Report 24928297 (Version 1)
Quarter: 2025Q1

REPORT INFORMATION
  Report Type: Spontaneous
  Country: GB (occurrence: GB)
  Receive Date: 20250205
  Receipt Date: 20250205
  Transmission Date: 20250409
  Serious: Yes (Other)
  Sender: ELI LILLY AND COMPANY
  Company Number: GB-MHRA-TPP16865780C9352527YC1737642186183

PATIENT
  Age: 44 Year
  Sex: Female
  Weight: 72 kg

DRUGS (6)
  1. MOUNJARO [Suspect]
     Active Substance: TIRZEPATIDE
     Indication: Adverse drug reaction
     Route: 065
     Dates: start: 20240301, end: 20250107
  2. AMITRIPTYLINE HYDROCHLORIDE [Concomitant]
     Active Substance: AMITRIPTYLINE HYDROCHLORIDE
     Indication: Ill-defined disorder
     Dosage: UNK UNK, DAILY (USE ONE AT EVENING)
     Route: 065
     Dates: start: 20250107, end: 20250114
  3. CODEINE PHOSPHATE [Concomitant]
     Active Substance: CODEINE PHOSPHATE
     Indication: Ill-defined disorder
     Dosage: UNK UNK, QID (TAKE ONE 4 TIMES/DAY)
     Route: 065
     Dates: start: 20250107, end: 20250114
  4. AMOXICILLIN\CLAVULANATE POTASSIUM [Concomitant]
     Active Substance: AMOXICILLIN\CLAVULANATE POTASSIUM
     Indication: Ill-defined disorder
     Dosage: UNK UNK, TID (TAKE ONE 3 TIMES/DAY)
     Route: 065
     Dates: start: 20250108, end: 20250115
  5. BUTYLSCOPOLAMINE BROMIDE [Concomitant]
     Active Substance: BUTYLSCOPOLAMINE BROMIDE
     Indication: Ill-defined disorder
     Dosage: 2 DOSAGE FORM, QID (TAKE TWO 4 TIMES/DAY)
     Route: 065
     Dates: start: 20250108, end: 20250115
  6. SERTRALINE [Concomitant]
     Active Substance: SERTRALINE HYDROCHLORIDE
     Indication: Ill-defined disorder
     Dosage: 1 DOSAGE FORM, DAILY (TAKE ONE TABLET A DAY)
     Route: 065
     Dates: start: 20240319, end: 20250116

REACTIONS (4)
  - Hepatitis [Unknown]
  - Bile duct stone [Unknown]
  - Cholelithiasis [Recovered/Resolved with Sequelae]
  - Pain [Unknown]

NARRATIVE: CASE EVENT DATE: 20250108
